FAERS Safety Report 13902038 (Version 1)
Quarter: 2017Q3

REPORT INFORMATION
  Report Type: Spontaneous
  Country: US (occurrence: US)
  Receive Date: 20170824
  Receipt Date: 20170824
  Transmission Date: 20171127
  Serious: Yes (Other)
  Sender: FDA-Public Use
  Company Number: US-PFIZER INC-2017361381

PATIENT
  Age: 63 Year
  Sex: Male

DRUGS (1)
  1. XELJANZ XR [Suspect]
     Active Substance: TOFACITINIB CITRATE
     Dosage: 11 MG, DAILY
     Dates: start: 20170327

REACTIONS (16)
  - Muscle spasms [Unknown]
  - Joint swelling [Unknown]
  - Joint range of motion decreased [Unknown]
  - Dry skin [Unknown]
  - Swelling [Unknown]
  - Stress [Unknown]
  - Myalgia [Unknown]
  - Synovial cyst [Unknown]
  - Muscle atrophy [Unknown]
  - Musculoskeletal pain [Unknown]
  - Pain [Unknown]
  - Musculoskeletal stiffness [Unknown]
  - Joint abscess [Unknown]
  - Arthralgia [Recovering/Resolving]
  - Loss of personal independence in daily activities [Unknown]
  - Tenderness [Unknown]
